FAERS Safety Report 5277192-8 (Version None)
Quarter: 2007Q1

REPORT INFORMATION
  Report Type: 
  Country: None (occurrence: None)
  Receive Date: 20061213
  Receipt Date: 20060627
  Transmission Date: 20070707
  Serious: Yes (Disabling)
  Sender: FDA-Public Use
  Company Number: 2006UW13632

PATIENT
  Age: 44 Year
  Sex: Male

DRUGS (2)
  1. SEROQUEL [Suspect]
     Dosage: 600 MG PO
     Route: 048
     Dates: start: 20050601
  2. LAMICTAL ^BURROUGHS WELLCOME^ [Concomitant]

REACTIONS (1)
  - PRIAPISM [None]
